FAERS Safety Report 23048084 (Version 1)
Quarter: 2023Q4

REPORT INFORMATION
  Report Type: Spontaneous
  Country: US (occurrence: US)
  Receive Date: 20231010
  Receipt Date: 20231010
  Transmission Date: 20240109
  Serious: No
  Sender: FDA-Public Use
  Company Number: US-SUN PHARMACEUTICAL INDUSTRIES LTD-2023R1-377372

PATIENT
  Sex: Female

DRUGS (3)
  1. CEQUA [Suspect]
     Active Substance: CYCLOSPORINE
     Indication: Product used for unknown indication
     Dosage: UNK
     Route: 065
  2. LEVOXYL [Concomitant]
     Active Substance: LEVOTHYROXINE SODIUM
     Indication: Thyroid disorder
     Dosage: UNK
     Route: 065
  3. PARANOL [Concomitant]
     Indication: Product used for unknown indication
     Dosage: UNK (ONCE A DAY)
     Route: 065

REACTIONS (4)
  - Eye irritation [Recovering/Resolving]
  - Therapy cessation [Unknown]
  - Ocular hyperaemia [Recovering/Resolving]
  - Visual impairment [Recovering/Resolving]
